FAERS Safety Report 18171219 (Version 1)
Quarter: 2020Q3

REPORT INFORMATION
  Report Type: Spontaneous
  Country: NL (occurrence: RS)
  Receive Date: 20200819
  Receipt Date: 20200819
  Transmission Date: 20201103
  Serious: Yes (Other)
  Sender: FDA-Public Use
  Company Number: RS-ENDO PHARMACEUTICALS INC-2020-005534

PATIENT
  Age: 42 Year
  Sex: Female

DRUGS (2)
  1. AVEED [Suspect]
     Active Substance: TESTOSTERONE UNDECANOATE
     Indication: TRANS-SEXUALISM
     Dosage: 250 MG, EVERY 2 WEEKS
     Route: 030
  2. AVEED [Suspect]
     Active Substance: TESTOSTERONE UNDECANOATE
     Dosage: 250 MG, EVERY 17 DAYS, FOR 12 MONTHS
     Route: 030

REACTIONS (4)
  - Invasive ductal breast carcinoma [Recovering/Resolving]
  - Breast cancer metastatic [Recovering/Resolving]
  - Off label use [Unknown]
  - Metastases to lung [Recovering/Resolving]
